FAERS Safety Report 6294173-6 (Version None)
Quarter: 2009Q3

REPORT INFORMATION
  Report Type: 
  Country: None (occurrence: None)
  Receive Date: 20090803
  Receipt Date: 20090128
  Transmission Date: 20100115
  Serious: No
  Sender: FDA-Public Use
  Company Number: A0765646A

PATIENT
  Age: 61 Year
  Sex: Female

DRUGS (1)
  1. NICORETTE (MINT) [Suspect]

REACTIONS (6)
  - GLOSSODYNIA [None]
  - HICCUPS [None]
  - INTENTIONAL DRUG MISUSE [None]
  - ORAL PAIN [None]
  - OROPHARYNGEAL BLISTERING [None]
  - TONGUE BLISTERING [None]
